FAERS Safety Report 6584690-3 (Version None)
Quarter: 2010Q1

REPORT INFORMATION
  Report Type: 
  Country: None (occurrence: None)
  Receive Date: 20100217
  Receipt Date: 20100204
  Transmission Date: 20100710
  Serious: Yes (Hospitalization)
  Sender: FDA-Public Use
  Company Number: PHEH2010US01411

PATIENT
  Sex: Female

DRUGS (9)
  1. EXJADE [Suspect]
     Indication: IRON METABOLISM DISORDER
     Dosage: 1250 MG, DAILY
     Route: 048
     Dates: start: 20100104
  2. EXJADE [Suspect]
     Dosage: 750 MG, DAILY
     Route: 048
  3. LIPITOR [Concomitant]
  4. TOPROL-XL [Concomitant]
  5. FOLIC ACID [Concomitant]
  6. METOLAZONE [Concomitant]
  7. ALDACTONE [Concomitant]
  8. PROMETHAZINE [Concomitant]
  9. LORAZEPAM [Concomitant]

REACTIONS (8)
  - ABDOMINAL PAIN UPPER [None]
  - BLOOD BILIRUBIN INCREASED [None]
  - DEHYDRATION [None]
  - DIARRHOEA [None]
  - HYPERTENSION [None]
  - JAUNDICE [None]
  - NAUSEA [None]
  - OEDEMA [None]
